FAERS Safety Report 22640656 (Version 1)
Quarter: 2023Q2

REPORT INFORMATION
  Report Type: Report from Study
  Country: US (occurrence: US)
  Receive Date: 20230626
  Receipt Date: 20230626
  Transmission Date: 20230721
  Serious: Yes (Other)
  Sender: FDA-Public Use
  Company Number: US-MYLANLABS-2023M1065999

PATIENT
  Age: 21 Year
  Sex: Female

DRUGS (3)
  1. AMNESTEEM [Suspect]
     Active Substance: ISOTRETINOIN
     Indication: Product used for unknown indication
     Dosage: 20 MILLIGRAM, QD
     Route: 065
     Dates: start: 20230424, end: 20230615
  2. AMNESTEEM [Suspect]
     Active Substance: ISOTRETINOIN
     Indication: Product used for unknown indication
     Dosage: UNK
     Route: 065
  3. LESSINA [Concomitant]
     Active Substance: ETHINYL ESTRADIOL\LEVONORGESTREL
     Dosage: UNK (START DATE: --2023)
     Route: 065

REACTIONS (1)
  - Maternal exposure during pregnancy [Unknown]

NARRATIVE: CASE EVENT DATE: 20230616
